FAERS Safety Report 16006964 (Version 1)
Quarter: 2019Q1

REPORT INFORMATION
  Report Type: Spontaneous
  Country: US (occurrence: US)
  Receive Date: 20190226
  Receipt Date: 20190226
  Transmission Date: 20190418
  Serious: No
  Sender: FDA-Public Use
  Company Number: PHEH2019US007930

PATIENT
  Sex: Female

DRUGS (1)
  1. ENOXAPARIN SODIUM. [Suspect]
     Active Substance: ENOXAPARIN SODIUM
     Indication: IRON DEFICIENCY ANAEMIA
     Dosage: 80 MG, BID
     Route: 058
     Dates: start: 201702

REACTIONS (1)
  - Injection site mass [Unknown]
